FAERS Safety Report 5977538-9 (Version None)
Quarter: 2008Q4

REPORT INFORMATION
  Report Type: 
  Country: None (occurrence: None)
  Receive Date: 20081125
  Receipt Date: 20081111
  Transmission Date: 20090506
  Serious: Yes (Hospitalization)
  Sender: FDA-Public Use
  Company Number: ANTA0800161

PATIENT
  Sex: Male

DRUGS (1)
  1. FENOFIBRATE [Suspect]
     Indication: DRUG USE FOR UNKNOWN INDICATION
     Dosage: 130 MG, QD, ORAL
     Route: 048
     Dates: start: 20081001, end: 20081101

REACTIONS (3)
  - AUTOIMMUNE DISORDER [None]
  - DYSPNOEA [None]
  - URTICARIA [None]
